FAERS Safety Report 16015758 (Version 1)
Quarter: 2019Q1

REPORT INFORMATION
  Report Type: Spontaneous
  Country: FR (occurrence: FR)
  Receive Date: 20190228
  Receipt Date: 20190228
  Transmission Date: 20190418
  Serious: Yes (Hospitalization)
  Sender: FDA-Public Use
  Company Number: FR-TEVA-2019-FR-1016480

PATIENT
  Age: 23 Year
  Sex: Female
  Weight: 52 kg

DRUGS (4)
  1. ESCITALOPRAM [Suspect]
     Active Substance: ESCITALOPRAM OXALATE
     Indication: TOXICITY TO VARIOUS AGENTS
     Route: 048
     Dates: start: 20181024, end: 20181024
  2. VALIUM [Suspect]
     Active Substance: DIAZEPAM
     Indication: TOXICITY TO VARIOUS AGENTS
     Route: 048
     Dates: start: 20181024, end: 20181024
  3. LITHIUM. [Suspect]
     Active Substance: LITHIUM
     Indication: TOXICITY TO VARIOUS AGENTS
     Dosage: 1.2 GRAM DAILY;
     Route: 048
     Dates: start: 20181024, end: 20181024
  4. TERCIAN [Suspect]
     Active Substance: CYAMEMAZINE
     Indication: TOXICITY TO VARIOUS AGENTS
     Dosage: 250 MILLIGRAM DAILY;
     Route: 048
     Dates: start: 20181024, end: 20181024

REACTIONS (4)
  - Confusional state [Recovered/Resolved]
  - Tachycardia [Recovered/Resolved]
  - Seizure [Recovered/Resolved]
  - Logorrhoea [Recovered/Resolved]

NARRATIVE: CASE EVENT DATE: 20181024
